FAERS Safety Report 5040634-7 (Version None)
Quarter: 2006Q2

REPORT INFORMATION
  Report Type: 
  Country: None (occurrence: None)
  Receive Date: 20060628
  Receipt Date: 20060620
  Transmission Date: 20061013
  Serious: Yes (Death)
  Sender: FDA-Public Use
  Company Number: 430001E06PRT

PATIENT
  Age: 71 Year
  Sex: Female

DRUGS (8)
  1. NOVANTRONE [Suspect]
     Indication: ACUTE MYELOID LEUKAEMIA
     Dosage: 33 MG (INTRAVENOUS
     Dates: start: 20051210, end: 20051216
  2. GEMTUZUMAB OZOGAMICIN                (GEMTUZUMAB OZOGAMICIN) [Suspect]
     Indication: ACUTE MYELOID LEUKAEMIA
     Dosage: 5 MG ONCE INTRAVENOUS
     Route: 042
     Dates: start: 20060118, end: 20060118
  3. CYTARABINE [Suspect]
     Indication: ACUTE MYELOID LEUKAEMIA
     Dosage: INTRAVENOUS
     Route: 042
     Dates: start: 20060118, end: 20060123
  4. IDARUBICIN HCL [Suspect]
     Dosage: INTRAVENOUS
     Route: 042
     Dates: start: 20060118, end: 20060123
  5. VP-16                         (ETOPOSIDE [Suspect]
     Indication: ACUTE MYELOID LEUKAEMIA
     Dosage: 465MG INTRAVENOUS
     Route: 042
     Dates: start: 20060118, end: 20060123
  6. IMIPENEM [Concomitant]
  7. VANCOMYCIN [Concomitant]
  8. AMPHOTERICIN B [Concomitant]

REACTIONS (3)
  - CARDIAC ARREST [None]
  - PSEUDOMONAL SEPSIS [None]
  - SEPTIC SHOCK [None]
